FAERS Safety Report 9222341 (Version 1)
Quarter: 2013Q2

REPORT INFORMATION
  Report Type: Spontaneous
  Country: BR (occurrence: BR)
  Receive Date: 20130410
  Receipt Date: 20130410
  Transmission Date: 20140414
  Serious: Yes (Death)
  Sender: FDA-Public Use
  Company Number: BR-PFIZER INC-2013112648

PATIENT
  Age: 84 Year
  Sex: Male
  Weight: 70 kg

DRUGS (6)
  1. ERANZ [Suspect]
     Indication: DEMENTIA ALZHEIMER^S TYPE
     Dosage: 5 MG (ONE TABLET), DAILY
     Route: 048
  2. LIPITOR [Suspect]
     Indication: BLOOD CHOLESTEROL ABNORMAL
     Dosage: 10 MG (ONE TABLET), DAILY
     Route: 048
  3. AMINIC [Concomitant]
  4. CALCIUM [Concomitant]
  5. OMEPRAZOL [Concomitant]
  6. ASS [Concomitant]
     Indication: BLOOD DISORDER
     Dosage: UNK
     Dates: start: 1993, end: 2012

REACTIONS (1)
  - Pancreatic carcinoma [Fatal]
